FAERS Safety Report 16029703 (Version 1)
Quarter: 2019Q1

REPORT INFORMATION
  Report Type: Spontaneous
  Country: US (occurrence: US)
  Receive Date: 20190304
  Receipt Date: 20190304
  Transmission Date: 20190418
  Serious: Yes (Disabling, Other)
  Sender: FDA-Public Use
  Company Number: US-JNJFOC-20190231668

PATIENT
  Sex: Male

DRUGS (1)
  1. LEVAQUIN [Suspect]
     Active Substance: LEVOFLOXACIN
     Indication: INFECTION
     Route: 065
     Dates: start: 20170331

REACTIONS (10)
  - Disinhibition [Unknown]
  - Psychotic disorder [Unknown]
  - Amnesia [Unknown]
  - Depressed level of consciousness [Unknown]
  - Neuropathy peripheral [Unknown]
  - Anxiety [Unknown]
  - Visual impairment [Unknown]
  - Migraine [Unknown]
  - Tendonitis [Unknown]
  - Insomnia [Unknown]
